FAERS Safety Report 17205230 (Version 1)
Quarter: 2019Q4

REPORT INFORMATION
  Report Type: Spontaneous
  Country: US (occurrence: US)
  Receive Date: 20191227
  Receipt Date: 20191227
  Transmission Date: 20200122
  Serious: No
  Sender: FDA-Public Use
  Company Number: US-ELI_LILLY_AND_COMPANY-US201912012209

PATIENT
  Age: 85 Year
  Sex: Male

DRUGS (2)
  1. HUMALOG [Suspect]
     Active Substance: INSULIN LISPRO
     Dosage: 14 U, UNKNOWN
     Route: 058
  2. HUMALOG [Suspect]
     Active Substance: INSULIN LISPRO
     Indication: TYPE 1 DIABETES MELLITUS
     Dosage: 14 U, UNKNOWN
     Route: 058

REACTIONS (5)
  - Incorrect dose administered [Unknown]
  - Blood glucose abnormal [Unknown]
  - Hypoacusis [Unknown]
  - Feeling abnormal [Unknown]
  - Visual impairment [Unknown]
